FAERS Safety Report 14206886 (Version 2)
Quarter: 2018Q1

REPORT INFORMATION
  Report Type: Spontaneous
  Country: CA (occurrence: CA)
  Receive Date: 20171121
  Receipt Date: 20180212
  Transmission Date: 20180508
  Serious: Yes (Other)
  Sender: FDA-Public Use
  Company Number: CA-ORION CORPORATION ORION PHARMA-TREX2017-3503

PATIENT
  Age: 51 Year
  Sex: Female

DRUGS (4)
  1. PLAQUENIL [Concomitant]
     Active Substance: HYDROXYCHLOROQUINE SULFATE
     Indication: RHEUMATOID ARTHRITIS
     Route: 065
     Dates: start: 201512
  2. PREDNISONE. [Concomitant]
     Active Substance: PREDNISONE
     Route: 065
     Dates: end: 201712
  3. METHOTREXATE (TRADE NAME UNKNOWN) [Suspect]
     Active Substance: METHOTREXATE
     Indication: RHEUMATOID ARTHRITIS
     Route: 048
     Dates: start: 201704, end: 201712
  4. NAPROSYN [Concomitant]
     Active Substance: NAPROXEN
     Route: 065
     Dates: start: 201509

REACTIONS (4)
  - Drug dose omission [Unknown]
  - Hepatic cirrhosis [Unknown]
  - Drug ineffective [Not Recovered/Not Resolved]
  - Ultrasound liver abnormal [Not Recovered/Not Resolved]
